FAERS Safety Report 17016104 (Version 1)
Quarter: 2019Q4

REPORT INFORMATION
  Report Type: Spontaneous
  Country: US (occurrence: US)
  Receive Date: 20191109
  Receipt Date: 20191109
  Transmission Date: 20200122
  Serious: No
  Sender: FDA-Public Use
  Company Number: None

PATIENT
  Age: 31 Year
  Sex: Female
  Weight: 56.25 kg

DRUGS (1)
  1. SPIRONOLACTONE 50 MG TABLET [Suspect]
     Active Substance: SPIRONOLACTONE
     Indication: ACNE
     Dosage: ?          QUANTITY:1 TABLET(S);?
     Route: 048
     Dates: start: 20181130

REACTIONS (7)
  - Pollakiuria [None]
  - Off label use [None]
  - Headache [None]
  - Muscle fatigue [None]
  - Breast tenderness [None]
  - Palpitations [None]
  - Breast swelling [None]

NARRATIVE: CASE EVENT DATE: 20191109
